FAERS Safety Report 23149839 (Version 1)
Quarter: 2023Q4

REPORT INFORMATION
  Report Type: Spontaneous
  Country: FR (occurrence: FR)
  Receive Date: 20231106
  Receipt Date: 20231106
  Transmission Date: 20240109
  Serious: Yes (Hospitalization)
  Sender: FDA-Public Use
  Company Number: None

PATIENT
  Age: 96 Year
  Sex: Female

DRUGS (3)
  1. FUROSEMIDE [Suspect]
     Active Substance: FUROSEMIDE
     Indication: Cardiac failure
     Dosage: 40 MILLIGRAM, QD
     Route: 048
     Dates: start: 2019, end: 20231005
  2. ALDACTAZINE [Suspect]
     Active Substance: ALTHIAZIDE\SPIRONOLACTONE
     Indication: Cardiac failure
     Dosage: 1 DOSAGE FORM, QD, 1 TAB PER DAY IN MORNING
     Route: 048
     Dates: start: 2021, end: 20231005
  3. COLCHICINE [Suspect]
     Active Substance: COLCHICINE
     Indication: Polyarthritis
     Dosage: 1 MILLIGRAM, QD,  1 MG PER DAY
     Route: 048
     Dates: start: 2021, end: 20231005

REACTIONS (2)
  - Hepatic cytolysis [Recovering/Resolving]
  - Cholestasis [Recovering/Resolving]

NARRATIVE: CASE EVENT DATE: 20231005
